FAERS Safety Report 15709048 (Version 1)
Quarter: 2018Q4

REPORT INFORMATION
  Report Type: Spontaneous
  Country: FR (occurrence: FR)
  Receive Date: 20181211
  Receipt Date: 20181211
  Transmission Date: 20190205
  Serious: Yes (Other)
  Sender: FDA-Public Use
  Company Number: US-BRAINTREE LABORATORIES-180533-1

PATIENT
  Age: 64 Year
  Sex: Male

DRUGS (1)
  1. EZICLEN [Suspect]
     Active Substance: MAGNESIUM SULFATE\POTASSIUM SULFATE\SODIUM SULFATE
     Indication: COLONOSCOPY
     Route: 048
     Dates: start: 20160710, end: 20160710

REACTIONS (2)
  - Facial paresis [None]
  - Hypertensive crisis [None]

NARRATIVE: CASE EVENT DATE: 20160711
